FAERS Safety Report 7186834-1 (Version None)
Quarter: 2010Q4

REPORT INFORMATION
  Report Type: 
  Country: None (occurrence: None)
  Receive Date: 20101222
  Receipt Date: 20101216
  Transmission Date: 20110411
  Serious: Yes (Other)
  Sender: FDA-Public Use
  Company Number: B0628700A

PATIENT
  Sex: Female
  Weight: 62 kg

DRUGS (11)
  1. RELENZA [Suspect]
     Indication: INFLUENZA
     Dosage: 20MG PER DAY
     Route: 055
     Dates: start: 20100119, end: 20100123
  2. CALONAL [Concomitant]
     Route: 048
     Dates: start: 20100119
  3. ATROPINE SULPHATE [Concomitant]
     Dosage: 1IUAX PER DAY
     Dates: start: 20100212, end: 20100212
  4. PENTAZOCINE LACTATE [Concomitant]
     Dosage: 1IUAX PER DAY
     Dates: start: 20100212, end: 20100212
  5. PROPOFOL [Concomitant]
     Dosage: 1IUAX PER DAY
     Dates: start: 20100212, end: 20100212
  6. ERGOMETRINE MALEATE [Concomitant]
     Indication: UTERINE CONTRACTIONS DURING PREGNANCY
     Dosage: 1IUAX PER DAY
     Dates: start: 20100212, end: 20100212
  7. PANSPORIN [Concomitant]
     Dosage: 1IUAX PER DAY
     Dates: start: 20100212, end: 20100212
  8. DASEN [Concomitant]
     Dosage: 3IUAX PER DAY
     Route: 048
     Dates: start: 20100212, end: 20100216
  9. METHERGINE [Concomitant]
     Indication: UTERINE CONTRACTIONS DURING PREGNANCY
     Dosage: 3IUAX PER DAY
     Route: 048
     Dates: start: 20100212, end: 20100216
  10. CEFZON [Concomitant]
     Indication: INFECTION
     Dosage: 3IUAX PER DAY
     Route: 048
     Dates: start: 20100212, end: 20100216
  11. SELBEX [Concomitant]
     Dosage: 3IUAX PER DAY
     Route: 048
     Dates: start: 20100212, end: 20100216

REACTIONS (2)
  - ABORTION SPONTANEOUS [None]
  - DRUG EXPOSURE DURING PREGNANCY [None]
